FAERS Safety Report 7816635-X (Version None)
Quarter: 2011Q4

REPORT INFORMATION
  Report Type: 
  Country: None (occurrence: None)
  Receive Date: 20111017
  Receipt Date: 20111014
  Transmission Date: 20120403
  Serious: Yes (Other)
  Sender: FDA-Public Use
  Company Number: FR-PFIZER INC-2011239562

PATIENT
  Age: 48 Year
  Sex: Male
  Weight: 100 kg

DRUGS (6)
  1. LEVOTHYROXINE SODIUM [Concomitant]
     Indication: PRIMARY HYPOTHYROIDISM
  2. SOMATROPIN [Suspect]
     Indication: GROWTH HORMONE DEFICIENCY
     Dosage: 0.2 MG, 1X/DAY, 7 INJECTIONS/WEEK
     Route: 058
     Dates: start: 20060112, end: 20090720
  3. LEVOTHYROXINE SODIUM [Concomitant]
     Indication: BLOOD THYROID STIMULATING HORMONE DECREASED
     Dosage: 75 UG, 1X/DAY
     Route: 048
     Dates: start: 20050922
  4. ANDROTARDYL [Concomitant]
     Indication: FOLLICLE-STIMULATING HORMONE DEFICIENCY
     Dosage: 1 DF, EVERY 3 WEEKS
     Route: 030
     Dates: start: 20050922
  5. ANDROTARDYL [Concomitant]
     Indication: LUTEINISING HORMONE DEFICIENCY
  6. ANDROTARDYL [Concomitant]
     Indication: HYPOGONADISM MALE

REACTIONS (1)
  - PITUITARY TUMOUR BENIGN [None]
